FAERS Safety Report 5035123-X (Version None)
Quarter: 2006Q2

REPORT INFORMATION
  Report Type: 
  Country: None (occurrence: None)
  Receive Date: 20060627
  Receipt Date: 20060614
  Transmission Date: 20061013
  Serious: Yes (Other)
  Sender: FDA-Public Use
  Company Number: PHEH2006US07854

PATIENT
  Sex: Female

DRUGS (6)
  1. ZOMETA [Suspect]
     Indication: MULTIPLE MYELOMA
     Dosage: 4 UNK, ONCE/SINGLE
     Dates: start: 20060504
  2. NEURONTIN [Concomitant]
  3. ACTONEL [Concomitant]
  4. SPIRONOLACTONE [Concomitant]
  5. ASPIRIN [Concomitant]
  6. FOLTX [Concomitant]

REACTIONS (3)
  - BIOPSY KIDNEY ABNORMAL [None]
  - NEPHRITIS INTERSTITIAL [None]
  - RENAL FAILURE ACUTE [None]
